FAERS Safety Report 11149362 (Version 1)
Quarter: 2015Q2

REPORT INFORMATION
  Report Type: Spontaneous
  Country: BR (occurrence: BR)
  Receive Date: 20150529
  Receipt Date: 20150529
  Transmission Date: 20150821
  Serious: Yes (Hospitalization, Other)
  Sender: FDA-Public Use
  Company Number: BR-JNJFOC-20130703172

PATIENT
  Sex: Male
  Weight: 67 kg

DRUGS (13)
  1. REMICADE [Suspect]
     Active Substance: INFLIXIMAB
     Indication: ANKYLOSING SPONDYLITIS
     Dosage: 6 VIALS
     Route: 042
     Dates: start: 201501
  2. REMICADE [Suspect]
     Active Substance: INFLIXIMAB
     Indication: ANKYLOSING SPONDYLITIS
     Route: 042
     Dates: start: 2012
  3. REMICADE [Suspect]
     Active Substance: INFLIXIMAB
     Indication: CROHN^S DISEASE
     Dosage: 3 VIALS
     Route: 042
     Dates: start: 20130702
  4. REMICADE [Suspect]
     Active Substance: INFLIXIMAB
     Indication: CROHN^S DISEASE
     Dosage: 6 VIALS
     Route: 042
     Dates: start: 20150310
  5. REMICADE [Suspect]
     Active Substance: INFLIXIMAB
     Indication: ANKYLOSING SPONDYLITIS
     Dosage: 6 VIALS
     Route: 042
     Dates: start: 20150310
  6. REMICADE [Suspect]
     Active Substance: INFLIXIMAB
     Indication: CROHN^S DISEASE
     Dosage: 6 VIALS
     Route: 042
     Dates: start: 201501
  7. REMICADE [Suspect]
     Active Substance: INFLIXIMAB
     Indication: CROHN^S DISEASE
     Route: 042
  8. REMICADE [Suspect]
     Active Substance: INFLIXIMAB
     Indication: ANKYLOSING SPONDYLITIS
     Route: 042
  9. REMICADE [Suspect]
     Active Substance: INFLIXIMAB
     Indication: CROHN^S DISEASE
     Route: 042
     Dates: start: 2012
  10. AZATHIOPRINE. [Concomitant]
     Active Substance: AZATHIOPRINE
     Route: 065
  11. REMICADE [Suspect]
     Active Substance: INFLIXIMAB
     Indication: ANKYLOSING SPONDYLITIS
     Dosage: 3 VIALS
     Route: 042
     Dates: start: 20130702
  12. MESALAZINE [Concomitant]
     Active Substance: MESALAMINE
     Route: 065
  13. METICORTEN [Concomitant]
     Active Substance: PREDNISONE
     Route: 065

REACTIONS (12)
  - Infection [Recovered/Resolved]
  - Post procedural infection [Unknown]
  - Drug dose omission [Unknown]
  - Haemangioma [Not Recovered/Not Resolved]
  - Hernia [Recovered/Resolved]
  - Gastric haemangioma [Not Recovered/Not Resolved]
  - Drug ineffective [Not Recovered/Not Resolved]
  - Peripheral swelling [Recovered/Resolved]
  - Cough [Recovered/Resolved]
  - Localised infection [Recovered/Resolved]
  - Laceration [Recovered/Resolved]
  - Pyrexia [Recovered/Resolved]

NARRATIVE: CASE EVENT DATE: 2013
